FAERS Safety Report 14832208 (Version 1)
Quarter: 2018Q2

REPORT INFORMATION
  Report Type: Spontaneous
  Country: DE (occurrence: DE)
  Receive Date: 20180501
  Receipt Date: 20180501
  Transmission Date: 20180711
  Serious: Yes (Hospitalization, Other)
  Sender: FDA-Public Use
  Company Number: PHHY2014DE185056

PATIENT
  Age: 72 Year
  Sex: Female
  Weight: 68 kg

DRUGS (12)
  1. PERTUZUMAB. [Suspect]
     Active Substance: PERTUZUMAB
     Dosage: 840 MG, LOADING DOSE
     Route: 042
  2. PERTUZUMAB. [Suspect]
     Active Substance: PERTUZUMAB
     Dosage: 420 MG, UNK
     Route: 042
     Dates: end: 20160314
  3. PREDNISOLON [Concomitant]
     Active Substance: PREDNISOLONE
     Indication: POLYMYALGIA RHEUMATICA
     Dosage: 2.5 MG, UNK
     Route: 048
     Dates: start: 2009
  4. PERTUZUMAB. [Suspect]
     Active Substance: PERTUZUMAB
     Indication: BREAST CANCER
     Dosage: 420 MG, MAINTENANCE DOSE
     Route: 042
     Dates: start: 20140604, end: 20140905
  5. PANTOPRAZOLE [Concomitant]
     Active Substance: PANTOPRAZOLE
     Indication: POLYMYALGIA RHEUMATICA
     Dosage: 40  MG
     Route: 048
  6. PREDNISOLON [Concomitant]
     Active Substance: PREDNISOLONE
     Dosage: UNK
     Route: 065
  7. DOCETAXEL. [Suspect]
     Active Substance: DOCETAXEL
     Indication: HER-2 POSITIVE BREAST CANCER
     Dosage: 100 MG, UNK
     Route: 042
     Dates: start: 20140513, end: 20140513
  8. DOCETAXEL. [Suspect]
     Active Substance: DOCETAXEL
     Dosage: 130 MG, UNK
     Route: 042
     Dates: start: 20140604, end: 20140905
  9. DOCETAXEL. [Suspect]
     Active Substance: DOCETAXEL
     Dosage: 130 MG, UNK
     Route: 042
     Dates: end: 20160314
  10. HERCEPTIN [Suspect]
     Active Substance: TRASTUZUMAB
     Indication: HER-2 POSITIVE BREAST CANCER
     Dosage: 430 MG, MAINTENANCE DOSE
     Route: 042
     Dates: start: 20140604, end: 20140826
  11. HERCEPTIN [Suspect]
     Active Substance: TRASTUZUMAB
     Dosage: 570 MG, (LOADING DOSE)
     Route: 042
  12. HERCEPTIN [Suspect]
     Active Substance: TRASTUZUMAB
     Dosage: 1 OT, UNK
     Route: 042
     Dates: start: 20141007, end: 20160222

REACTIONS (4)
  - Pneumonitis [Recovered/Resolved]
  - Interstitial lung disease [Recovering/Resolving]
  - Pneumonia [Recovered/Resolved]
  - Bronchitis chronic [Recovered/Resolved]

NARRATIVE: CASE EVENT DATE: 20140702
